FAERS Safety Report 14270587 (Version 2)
Quarter: 2018Q1

REPORT INFORMATION
  Report Type: Spontaneous
  Country: IT (occurrence: IT)
  Receive Date: 20171211
  Receipt Date: 20180207
  Transmission Date: 20180508
  Serious: Yes (Hospitalization, Other)
  Sender: FDA-Public Use
  Company Number: IT-OTSUKA-2017_005460

PATIENT
  Age: 43 Year
  Sex: Male

DRUGS (2)
  1. ABILIFY [Suspect]
     Active Substance: ARIPIPRAZOLE
     Indication: PRODUCT USED FOR UNKNOWN INDICATION
     Dosage: 150 ML, QD
     Route: 048
     Dates: start: 20161102, end: 20161102
  2. PROZAC [Concomitant]
     Active Substance: FLUOXETINE HYDROCHLORIDE
     Indication: PRODUCT USED FOR UNKNOWN INDICATION
     Dosage: 1 DF, UNK
     Route: 065

REACTIONS (9)
  - Glossitis [Unknown]
  - Alcohol abuse [Unknown]
  - Miosis [Unknown]
  - Tachycardia [Unknown]
  - Treatment noncompliance [Unknown]
  - Prescribed overdose [Unknown]
  - Crying [Unknown]
  - Mucosal dryness [Unknown]
  - Drug abuse [Unknown]

NARRATIVE: CASE EVENT DATE: 20161102
